FAERS Safety Report 9497228 (Version 1)
Quarter: 2013Q3

REPORT INFORMATION
  Report Type: Spontaneous
  Country: AU (occurrence: AU)
  Receive Date: 20130904
  Receipt Date: 20130904
  Transmission Date: 20140515
  Serious: Yes (Other)
  Sender: FDA-Public Use
  Company Number: PHHY2013AU095756

PATIENT
  Sex: Female
  Weight: 63 kg

DRUGS (2)
  1. NILOTINIB [Suspect]
     Dosage: 400 MG, BID
     Dates: start: 200801
  2. NILOTINIB [Suspect]
     Dosage: 300 MG, BID
     Dates: start: 200801

REACTIONS (3)
  - Acute myocardial infarction [Unknown]
  - Coronary artery disease [Unknown]
  - Rash [Unknown]
